FAERS Safety Report 6285463-1 (Version None)
Quarter: 2009Q3

REPORT INFORMATION
  Report Type: 
  Country: None (occurrence: None)
  Receive Date: 20090727
  Receipt Date: 20090713
  Transmission Date: 20100115
  Serious: Yes (Hospitalization, Disabling, Other)
  Sender: FDA-Public Use
  Company Number: GB-MYLANLABS-2009S1012386

PATIENT
  Age: 50 Year
  Sex: Female
  Weight: 50 kg

DRUGS (4)
  1. PAROXETINE HCL [Suspect]
     Indication: DEPRESSION
     Route: 048
     Dates: start: 20080801, end: 20090501
  2. PAROXETINE HCL [Suspect]
     Route: 048
  3. DEPAKOTE [Suspect]
     Indication: MOOD SWINGS
     Dates: start: 20080801, end: 20090501
  4. LITHIUM CARBONATE [Concomitant]
     Indication: MOOD SWINGS
     Route: 048
     Dates: start: 20090312, end: 20090326

REACTIONS (4)
  - ABASIA [None]
  - ASTHENIA [None]
  - HYPONATRAEMIA [None]
  - TREMOR [None]
